FAERS Safety Report 9101930 (Version 3)
Quarter: 2014Q1

REPORT INFORMATION
  Report Type: Spontaneous
  Country: US (occurrence: US)
  Receive Date: 20130218
  Receipt Date: 20140121
  Transmission Date: 20141002
  Serious: Yes (Other)
  Sender: FDA-Public Use
  Company Number: US-009507513-1302USA006630

PATIENT
  Sex: Male
  Weight: 88.89 kg

DRUGS (6)
  1. PROSCAR [Suspect]
     Indication: BENIGN PROSTATIC HYPERPLASIA
     Dosage: 5 MG, QOD
     Route: 048
     Dates: start: 20100126
  2. FINASTERIDE [Suspect]
     Indication: BENIGN PROSTATIC HYPERPLASIA
     Dosage: 5 MG, QOD
     Route: 048
     Dates: start: 200906, end: 20120301
  3. FINASTERIDE [Suspect]
     Dosage: 5 MG, QD
     Route: 048
     Dates: start: 200906, end: 20120301
  4. METOPROLOL [Concomitant]
     Indication: HYPERTENSION
     Dosage: UNK
     Dates: start: 200903, end: 201202
  5. LIPITOR [Concomitant]
     Indication: BLOOD CHOLESTEROL INCREASED
     Dosage: 10 MG, QD
     Dates: start: 200512
  6. VIAGRA [Concomitant]
     Indication: ERECTILE DYSFUNCTION
     Dosage: 50 MG, PRN
     Dates: start: 200606, end: 201007

REACTIONS (8)
  - Basal cell carcinoma [Unknown]
  - Peyronie^s disease [Not Recovered/Not Resolved]
  - Cognitive disorder [Not Recovered/Not Resolved]
  - Large intestinal polypectomy [Unknown]
  - Skin neoplasm excision [Unknown]
  - Colon adenoma [Unknown]
  - Sexual dysfunction [Not Recovered/Not Resolved]
  - Depression [Not Recovered/Not Resolved]
